FAERS Safety Report 9807549 (Version 1)
Quarter: 2014Q1

REPORT INFORMATION
  Report Type: Spontaneous
  Country: US (occurrence: US)
  Receive Date: 20140110
  Receipt Date: 20140110
  Transmission Date: 20141002
  Serious: No
  Sender: FDA-Public Use
  Company Number: US-SANOFI-AVENTIS-2013SA016540

PATIENT
  Age: 85 Year
  Sex: Female
  Weight: 47 kg

DRUGS (3)
  1. PLAVIX [Suspect]
     Indication: TRANSIENT ISCHAEMIC ATTACK
  2. LIPITOR /UNK/ [Suspect]
     Indication: TRANSIENT ISCHAEMIC ATTACK
     Dates: start: 20121213
  3. PROTONIX [Suspect]
     Indication: TRANSIENT ISCHAEMIC ATTACK

REACTIONS (3)
  - Vulvovaginal pruritus [Unknown]
  - Vaginal haemorrhage [Unknown]
  - Haemorrhoids [Unknown]
